FAERS Safety Report 7640790-8 (Version None)
Quarter: 2011Q3

REPORT INFORMATION
  Report Type: 
  Country: None (occurrence: None)
  Receive Date: 20110728
  Receipt Date: 20110726
  Transmission Date: 20111222
  Serious: Yes (Life-Threatening, Hospitalization)
  Sender: FDA-Public Use
  Company Number: IT-ASTRAZENECA-2009SE03257

PATIENT
  Age: 29406 Day
  Sex: Female
  Weight: 59 kg

DRUGS (18)
  1. GEMCITABINE [Suspect]
     Route: 042
     Dates: start: 20090414, end: 20090414
  2. CIPROFLOXACIN [Concomitant]
     Indication: URINARY TRACT INFECTION
  3. PIPERACILLIN AND TAZOBACTAM [Concomitant]
     Indication: URINARY TRACT INFECTION
     Route: 042
  4. VERTISERX [Concomitant]
     Indication: VERTIGO
     Route: 048
     Dates: start: 20020101
  5. DELTACORTENE FORTE [Concomitant]
     Indication: DYSPNOEA EXERTIONAL
     Dates: start: 20090401
  6. GEMCITABINE [Suspect]
     Route: 042
     Dates: start: 20090428, end: 20090428
  7. CEFAZOLINA [Concomitant]
     Indication: URINARY TRACT INFECTION
     Route: 042
  8. VANDETANIB [Suspect]
     Indication: NON-SMALL CELL LUNG CANCER
     Route: 048
     Dates: start: 20090406, end: 20090620
  9. GEMCITABINE [Suspect]
     Route: 042
     Dates: start: 20090616, end: 20090616
  10. ASPIRIN [Concomitant]
     Indication: PROPHYLAXIS
     Route: 048
  11. GEMCITABINE [Suspect]
     Indication: NON-SMALL CELL LUNG CANCER
     Route: 042
     Dates: start: 20090406, end: 20090406
  12. GEMCITABINE [Suspect]
     Route: 042
     Dates: start: 20090505, end: 20090505
  13. LEVOTHYROXINE SODIUM [Concomitant]
     Indication: HYPOTHYROIDISM
     Route: 048
  14. TRENTAL [Concomitant]
     Indication: VARICOSE VEIN
     Route: 048
  15. DIFLUCAN [Concomitant]
     Indication: URINARY TRACT INFECTION
     Route: 042
  16. GEMCITABINE [Suspect]
     Route: 042
     Dates: start: 20090609, end: 20090609
  17. GEMCITABINE [Suspect]
     Route: 042
     Dates: start: 20090521, end: 20090521
  18. GEMCITABINE [Suspect]
     Route: 042
     Dates: start: 20090526, end: 20090526

REACTIONS (2)
  - DEPRESSED LEVEL OF CONSCIOUSNESS [None]
  - PULMONARY EMBOLISM [None]
